FAERS Safety Report 6895205-4 (Version None)
Quarter: 2010Q3

REPORT INFORMATION
  Report Type: 
  Country: None (occurrence: None)
  Receive Date: 20100802
  Receipt Date: 20100722
  Transmission Date: 20110219
  Serious: Yes (Hospitalization)
  Sender: FDA-Public Use
  Company Number: PHHY2010JP48077

PATIENT
  Age: 74 Year
  Sex: Male

DRUGS (1)
  1. FAMVIR [Suspect]
     Indication: HERPES ZOSTER
     Dosage: 250 MG EVERY OTHER DAY
     Route: 048
     Dates: start: 20100712, end: 20100714

REACTIONS (1)
  - RENAL FAILURE ACUTE [None]
